FAERS Safety Report 16413738 (Version 2)
Quarter: 2019Q4

REPORT INFORMATION
  Report Type: Spontaneous
  Country: CN (occurrence: CN)
  Receive Date: 20190611
  Receipt Date: 20191127
  Transmission Date: 20200122
  Serious: Yes (Other)
  Sender: FDA-Public Use
  Company Number: CN-ROCHE-2326264

PATIENT
  Sex: Female
  Weight: 65 kg

DRUGS (7)
  1. APATINIB [Concomitant]
     Active Substance: APATINIB
     Route: 048
     Dates: start: 20171115
  2. HERCEPTIN [Suspect]
     Active Substance: TRASTUZUMAB
     Indication: METASTASES TO LUNG
     Dosage: 384 MG, DAY1
     Route: 065
     Dates: start: 20170907, end: 20170907
  3. HERCEPTIN [Suspect]
     Active Substance: TRASTUZUMAB
     Indication: MASTECTOMY
     Dosage: 384 MG, DAY1
     Route: 065
     Dates: start: 20170929, end: 20170929
  4. HERCEPTIN [Suspect]
     Active Substance: TRASTUZUMAB
     Dosage: 384 MG, DAY1
     Route: 065
     Dates: start: 20171020, end: 20171020
  5. DOCETAXEL. [Concomitant]
     Active Substance: DOCETAXEL
     Route: 065
     Dates: start: 20170907, end: 20170907
  6. DOCETAXEL. [Concomitant]
     Active Substance: DOCETAXEL
     Route: 065
     Dates: start: 20170929, end: 20170929
  7. DOCETAXEL. [Concomitant]
     Active Substance: DOCETAXEL
     Route: 065
     Dates: start: 20171020, end: 20171020

REACTIONS (13)
  - Tachypnoea [Unknown]
  - Lung disorder [Unknown]
  - Intervertebral disc protrusion [Unknown]
  - Chest discomfort [Unknown]
  - Palpitations [Unknown]
  - Pleural effusion [Unknown]
  - Ascites [Unknown]
  - Bone formation increased [Unknown]
  - Hepatic steatosis [Unknown]
  - Arteriosclerosis coronary artery [Unknown]
  - Pericardial effusion [Unknown]
  - Cholecystitis [Unknown]
  - Dyspnoea [Unknown]

NARRATIVE: CASE EVENT DATE: 20171026
